FAERS Safety Report 18840097 (Version 3)
Quarter: 2021Q1

REPORT INFORMATION
  Report Type: Report from Study
  Country: FR (occurrence: FR)
  Receive Date: 20210203
  Receipt Date: 20210211
  Transmission Date: 20210419
  Serious: Yes (Hospitalization)
  Sender: FDA-Public Use
  Company Number: FR-AMGEN-FRANI2021016446

PATIENT
  Age: 49 Year
  Sex: Female
  Weight: 57 kg

DRUGS (19)
  1. STILNOX [Concomitant]
     Active Substance: ZOLPIDEM TARTRATE
     Dosage: 1 UNK
     Dates: start: 20200901, end: 20201106
  2. SOLU?MEDROL [Concomitant]
     Active Substance: METHYLPREDNISOLONE SODIUM SUCCINATE
     Dosage: 20 MILLIGRAM
     Dates: start: 20200925, end: 20201023
  3. LANSOYL [Concomitant]
     Active Substance: MINERAL OIL
     Dosage: 1 UNK
     Dates: start: 20201022
  4. GAVISCON [CALCIUM CARBONATE;SODIUM ALGINATE] [Concomitant]
     Active Substance: CALCIUM CARBONATE\SODIUM ALGINATE
     Dosage: 1 UNK
     Dates: start: 20200905, end: 20201106
  5. XANAX [Concomitant]
     Active Substance: ALPRAZOLAM
     Dosage: 0.25 MILLIGRAM
     Dates: start: 20200901, end: 20201106
  6. MOXIFLOXACINE [Concomitant]
     Active Substance: MOXIFLOXACIN
     Dosage: 400 MILLIGRAM
     Dates: start: 20200926, end: 20201001
  7. ZARZIO [Concomitant]
     Active Substance: FILGRASTIM
     Dosage: 1 UNK
     Dates: start: 20201027, end: 20201105
  8. BLINATUMOMAB [Suspect]
     Active Substance: BLINATUMOMAB
     Indication: ACUTE LYMPHOCYTIC LEUKAEMIA
     Dosage: 33.33 MICROGRAM, QD
     Route: 042
     Dates: start: 20200908
  9. INSULINE [INSULIN PORCINE] [Concomitant]
     Active Substance: INSULIN PORK\INSULIN PURIFIED PORK
     Dosage: 12 INTERNATIONAL UNIT
     Dates: start: 20200928, end: 20201019
  10. ZOPHREN [ONDANSETRON] [Concomitant]
     Active Substance: ONDANSETRON
     Dosage: 1 UNK
     Dates: start: 20201020, end: 20201025
  11. FOLINATE DE CALCIUM [Concomitant]
     Active Substance: LEUCOVORIN CALCIUM
     Dosage: 25 MILLIGRAM
     Dates: start: 20201022, end: 20201024
  12. ZELITREX [Concomitant]
     Active Substance: VALACYCLOVIR HYDROCHLORIDE
     Dosage: 500 MILLIGRAM
     Dates: start: 20200908
  13. FLAGYL [Concomitant]
     Active Substance: METRONIDAZOLE\METRONIDAZOLE HYDROCHLORIDE
     Dosage: 500 MILLIGRAM
     Dates: start: 20200925, end: 20201001
  14. WELLVONE [Concomitant]
     Active Substance: ATOVAQUONE
     Dosage: 750 MILLIGRAM
     Dates: start: 20200909
  15. VORICONAZOLE. [Concomitant]
     Active Substance: VORICONAZOLE
     Dosage: 200?300 MILLIGRAM
     Dates: start: 20201001
  16. PRIMPERAN [Concomitant]
     Active Substance: METOCLOPRAMIDE HYDROCHLORIDE
     Dosage: 1 UNK
     Dates: start: 20201002, end: 20201106
  17. DEXAMETHASONE. [Concomitant]
     Active Substance: DEXAMETHASONE
     Dosage: 20 MILLIGRAM
     Dates: start: 20201023, end: 20201030
  18. AMBISONE [Concomitant]
     Active Substance: AMPHOTERICIN B
     Dosage: 180 MILLIGRAM
     Dates: start: 20200925, end: 20200930
  19. AMPHOTERICINE B [Concomitant]
     Active Substance: AMPHOTERICIN B
     Dosage: 180 MILLIGRAM
     Dates: start: 20200928, end: 20200930

REACTIONS (2)
  - Aplasia [Recovered/Resolved]
  - Infection [Recovered/Resolved]

NARRATIVE: CASE EVENT DATE: 20201030
